FAERS Safety Report 4864862-6 (Version None)
Quarter: 2005Q4

REPORT INFORMATION
  Report Type: 
  Country: None (occurrence: None)
  Receive Date: 20051201
  Receipt Date: 20050719
  Transmission Date: 20060501
  Serious: No
  Sender: FDA-Public Use
  Company Number: 2005PV000489

PATIENT
  Age: 60 Year
  Sex: Female
  Weight: 107.0489 kg

DRUGS (3)
  1. BYETTA [Suspect]
     Indication: DIABETES MELLITUS NON-INSULIN-DEPENDENT
     Dosage: 5 MCG; BID; SC
     Route: 058
     Dates: start: 20050716, end: 20050719
  2. GLUCOTROL XL [Concomitant]
  3. NEXIUM [Concomitant]

REACTIONS (9)
  - BLOOD GLUCOSE DECREASED [None]
  - GLOSSODYNIA [None]
  - NAUSEA [None]
  - OEDEMA [None]
  - OEDEMA MOUTH [None]
  - ORAL DISCOMFORT [None]
  - PHARYNGEAL OEDEMA [None]
  - PHARYNGOLARYNGEAL PAIN [None]
  - TONGUE OEDEMA [None]
